FAERS Safety Report 5500818-8 (Version None)
Quarter: 2007Q4

REPORT INFORMATION
  Report Type: 
  Country: None (occurrence: None)
  Receive Date: 20071029
  Receipt Date: 20071023
  Transmission Date: 20080405
  Serious: Yes (Hospitalization)
  Sender: FDA-Public Use
  Company Number: B0470348A

PATIENT
  Age: 57 Year
  Sex: Male
  Weight: 66 kg

DRUGS (3)
  1. ZEFFIX [Suspect]
     Indication: HEPATITIS B
     Dosage: 100MG PER DAY
     Route: 048
     Dates: start: 20060517, end: 20070424
  2. ZEFIX [Concomitant]
     Dates: start: 20070424
  3. HEPSERA [Concomitant]
     Dates: start: 20070424

REACTIONS (5)
  - ALANINE AMINOTRANSFERASE INCREASED [None]
  - ASPARTATE AMINOTRANSFERASE INCREASED [None]
  - DRUG RESISTANCE [None]
  - HEPATITIS [None]
  - VIRAL INFECTION [None]
